FAERS Safety Report 7347998-X (Version None)
Quarter: 2011Q1

REPORT INFORMATION
  Report Type: 
  Country: None (occurrence: None)
  Receive Date: 20110311
  Receipt Date: 20110308
  Transmission Date: 20110831
  Serious: Yes (Death, Life-Threatening, Hospitalization, Disabling, Other)
  Sender: FDA-Public Use
  Company Number: PHHY2010JP66946

PATIENT
  Sex: Male
  Weight: 67 kg

DRUGS (14)
  1. OXINORM [Concomitant]
     Indication: METASTATIC RENAL CELL CARCINOMA
     Dosage: 2.5 MG, UNK
     Route: 048
  2. TAKEPRON [Concomitant]
     Dosage: 15 MG, UNK
     Route: 048
     Dates: start: 20100825
  3. ZOMETA [Concomitant]
     Indication: METASTATIC RENAL CELL CARCINOMA
     Route: 041
     Dates: start: 20100913
  4. INTERFERON ALFA [Concomitant]
     Indication: METASTATIC RENAL CELL CARCINOMA
     Dosage: 3000000 IU, UNK
     Dates: start: 20100609, end: 20100628
  5. PLETAL [Concomitant]
     Dosage: 100 MG, UNK
     Route: 048
  6. ASPIRIN [Concomitant]
     Dosage: 100 MG, UNK
     Route: 048
  7. HYPEN [Concomitant]
     Indication: METASTATIC RENAL CELL CARCINOMA
     Dosage: 400 MG, UNK
     Route: 048
     Dates: start: 20100805
  8. OMEPRAL [Concomitant]
     Dosage: 20 MG, UNK
     Route: 041
     Dates: start: 20100816, end: 20100824
  9. AFINITOR [Suspect]
     Indication: METASTATIC RENAL CELL CARCINOMA
     Dosage: 10 MG, DAILY
     Route: 048
     Dates: start: 20100728, end: 20100810
  10. TECELEUKIN [Concomitant]
     Indication: METASTATIC RENAL CELL CARCINOMA
     Dosage: 1400000 IU, UNK
     Dates: start: 20100610, end: 20100706
  11. DUROTEP JANSSEN [Concomitant]
     Indication: METASTATIC RENAL CELL CARCINOMA
     Dosage: 0.7 MG, UNK
     Route: 062
  12. ASPIRIN [Concomitant]
     Dosage: 1 DF, UNK
     Route: 048
     Dates: start: 20100815, end: 20100815
  13. LOXONIN [Concomitant]
     Indication: METASTATIC RENAL CELL CARCINOMA
     Dosage: 180 MG, UNK
     Route: 048
  14. SELBEX [Concomitant]
     Dosage: 150 MG, UNK
     Route: 048

REACTIONS (10)
  - NEOPLASM MALIGNANT [None]
  - RADIATION PNEUMONITIS [None]
  - COUGH [None]
  - DECREASED APPETITE [None]
  - INTERSTITIAL LUNG DISEASE [None]
  - LYMPHOCYTE COUNT DECREASED [None]
  - DEATH [None]
  - ANAEMIA [None]
  - CONDITION AGGRAVATED [None]
  - PYREXIA [None]
